FAERS Safety Report 5291443-5 (Version None)
Quarter: 2007Q2

REPORT INFORMATION
  Report Type: 
  Country: None (occurrence: None)
  Receive Date: 20070402
  Receipt Date: 20070321
  Transmission Date: 20071010
  Serious: Yes (Other)
  Sender: FDA-Public Use
  Company Number: GXKR2007DK02800

PATIENT
  Age: 52 Year
  Sex: Female
  Weight: 93 kg

DRUGS (1)
  1. SERTRALIN 1A FARMA  (NGX) (SERTRALINE) UNKNOWN, 50MG [Suspect]
     Indication: DEPRESSION
     Dosage: 25 MG, UNK, ORAL
     Route: 048
     Dates: start: 20070114, end: 20070116

REACTIONS (4)
  - ANXIETY [None]
  - HALLUCINATION [None]
  - HEADACHE [None]
  - TREMOR [None]
